FAERS Safety Report 5083857-3 (Version None)
Quarter: 2006Q3

REPORT INFORMATION
  Report Type: 
  Country: None (occurrence: None)
  Receive Date: 20060818
  Receipt Date: 20060815
  Transmission Date: 20061208
  Serious: Yes (Hospitalization)
  Sender: FDA-Public Use
  Company Number: US-MERCK-0608USA03653

PATIENT
  Age: 71 Year
  Sex: Male

DRUGS (7)
  1. ZETIA [Suspect]
     Indication: BLOOD CHOLESTEROL INCREASED
     Route: 048
     Dates: start: 20060501, end: 20060701
  2. NITROGLYCERIN [Concomitant]
     Route: 065
  3. TRICOR [Concomitant]
     Route: 065
  4. METFORMIN [Concomitant]
     Route: 065
  5. AVANDIA [Concomitant]
     Route: 065
  6. ZESTORETIC [Concomitant]
     Route: 048
  7. TOPROL-XL [Concomitant]
     Route: 048

REACTIONS (3)
  - PAIN [None]
  - PULMONARY THROMBOSIS [None]
  - THROMBOSIS [None]
